FAERS Safety Report 21918482 (Version 1)
Quarter: 2023Q1

REPORT INFORMATION
  Report Type: Report from Study
  Country: US (occurrence: None)
  Receive Date: 20230127
  Receipt Date: 20230127
  Transmission Date: 20230418
  Serious: Yes (Hospitalization)
  Sender: FDA-Public Use
  Company Number: US-ROCHE-3271477

PATIENT
  Age: 70 Year
  Sex: Male
  Weight: 73.9 kg

DRUGS (2)
  1. ATEZOLIZUMAB [Suspect]
     Active Substance: ATEZOLIZUMAB
     Indication: Squamous cell carcinoma of head and neck
     Dosage: LAST ADMINISTERED DATE-21/JUN/2022
     Route: 041
     Dates: start: 20220125, end: 20220621
  2. CISPLATIN [Suspect]
     Active Substance: CISPLATIN
     Indication: Squamous cell carcinoma of head and neck
     Dosage: LAST ADMINISTERED DATE- 08/MAR/2022
     Route: 065
     Dates: start: 20220201, end: 20220308

REACTIONS (1)
  - Laryngeal oedema [Recovered/Resolved]

NARRATIVE: CASE EVENT DATE: 20220628
